FAERS Safety Report 18294608 (Version 1)
Quarter: 2020Q3

REPORT INFORMATION
  Report Type: Spontaneous
  Country: US (occurrence: US)
  Receive Date: 20200922
  Receipt Date: 20200922
  Transmission Date: 20201103
  Serious: No
  Sender: FDA-Public Use
  Company Number: US-MYLANLABS-2020M1079058

PATIENT
  Sex: Female
  Weight: 136 kg

DRUGS (1)
  1. EMSAM [Suspect]
     Active Substance: SELEGILINE
     Indication: MAJOR DEPRESSION
     Dosage: 6 MILLIGRAM, QD
     Route: 062

REACTIONS (3)
  - Product quality issue [Unknown]
  - Wrong technique in product usage process [Not Recovered/Not Resolved]
  - Product adhesion issue [Unknown]
